FAERS Safety Report 21766778 (Version 4)
Quarter: 2025Q3

REPORT INFORMATION
  Report Type: Spontaneous
  Country: CA (occurrence: CA)
  Receive Date: 20221222
  Receipt Date: 20250917
  Transmission Date: 20251020
  Serious: Yes (Other)
  Sender: PFIZER
  Company Number: CA-PFIZER INC-202200956713

PATIENT
  Age: 29 Year
  Sex: Female
  Weight: 80 kg

DRUGS (7)
  1. SULFASALAZINE [Suspect]
     Active Substance: SULFASALAZINE
     Indication: Ankylosing spondylitis
     Dosage: 1 G, 2X/DAY
     Route: 065
     Dates: start: 202309, end: 202309
  2. SULFASALAZINE [Suspect]
     Active Substance: SULFASALAZINE
     Indication: Psoriasis
  3. SULFASALAZINE [Suspect]
     Active Substance: SULFASALAZINE
     Indication: Crohn^s disease
  4. INFLECTRA [Concomitant]
     Active Substance: INFLIXIMAB-DYYB
     Indication: Ankylosing spondylitis
     Route: 042
     Dates: start: 20220620, end: 20220913
  5. INFLECTRA [Concomitant]
     Active Substance: INFLIXIMAB-DYYB
     Route: 042
     Dates: start: 20221107, end: 20230828
  6. INFLECTRA [Concomitant]
     Active Substance: INFLIXIMAB-DYYB
     Route: 042
     Dates: start: 20231006
  7. TYLENOL ARTHRITIS PAIN [Concomitant]
     Active Substance: ACETAMINOPHEN

REACTIONS (15)
  - Ileocaecal resection [Recovering/Resolving]
  - Therapeutic response shortened [Unknown]
  - COVID-19 [Recovering/Resolving]
  - Pain [Unknown]
  - Blood creatinine decreased [Unknown]
  - C-reactive protein increased [Recovered/Resolved]
  - Eczema [Unknown]
  - Psoriasis [Unknown]
  - Red blood cell sedimentation rate decreased [Unknown]
  - Hypertension [Unknown]
  - Drug level increased [Unknown]
  - Arthralgia [Recovering/Resolving]
  - Condition aggravated [Unknown]
  - Condition aggravated [Unknown]
  - Drug intolerance [Unknown]

NARRATIVE: CASE EVENT DATE: 20220101
